FAERS Safety Report 8005909-8 (Version None)
Quarter: 2011Q4

REPORT INFORMATION
  Report Type: 
  Country: None (occurrence: None)
  Receive Date: 20111223
  Receipt Date: 20111219
  Transmission Date: 20120403
  Serious: Yes (Life-Threatening, Other)
  Sender: FDA-Public Use
  Company Number: GB-ASTRAZENECA-2011SE56032

PATIENT
  Age: 31 Year
  Sex: Male
  Weight: 108 kg

DRUGS (5)
  1. PROPOFOL [Suspect]
     Route: 042
     Dates: start: 20110831, end: 20110831
  2. FENTANYL [Concomitant]
     Indication: ANAESTHESIA
     Route: 042
     Dates: start: 20110831, end: 20110831
  3. ONDANSETRON [Concomitant]
     Indication: ANAESTHESIA
     Route: 042
     Dates: start: 20110831, end: 20110831
  4. PROPOFOL [Suspect]
     Indication: INDUCTION OF ANAESTHESIA
     Route: 042
     Dates: start: 20110831, end: 20110831
  5. ALBUTEROL SULFATE AUTOHALER [Concomitant]
     Indication: ASTHMA
     Route: 055

REACTIONS (7)
  - GENERALISED ERYTHEMA [None]
  - TRISMUS [None]
  - HYPOXIA [None]
  - MUSCLE SPASMS [None]
  - RASH [None]
  - TONIC CLONIC MOVEMENTS [None]
  - CONVULSION [None]
